FAERS Safety Report 5195781-6 (Version None)
Quarter: 2007Q1

REPORT INFORMATION
  Report Type: 
  Country: None (occurrence: None)
  Receive Date: 20070102
  Receipt Date: 20061221
  Transmission Date: 20070707
  Serious: Yes (Hospitalization)
  Sender: FDA-Public Use
  Company Number: FRWYE926121DEC06

PATIENT
  Age: 75 Year
  Sex: Male

DRUGS (10)
  1. ENBREL [Suspect]
     Indication: RHEUMATOID ARTHRITIS
     Dosage: UNKNOWN
     Route: 060
     Dates: start: 20040815, end: 20051015
  2. METHOTREXATE [Suspect]
     Indication: RHEUMATOID ARTHRITIS
     Dosage: UNKNOWN
     Dates: start: 20051215, end: 20060822
  3. HUMIRA [Suspect]
     Indication: RHEUMATOID ARTHRITIS
     Dosage: UNKNOWN
     Dates: start: 20051215, end: 20060822
  4. CORTANCYL [Suspect]
     Indication: RHEUMATOID ARTHRITIS
     Dosage: UNKNOWN
  5. DEPAKENE [Concomitant]
     Dosage: UNKNOWN
  6. PLAVIX [Concomitant]
     Dosage: UNKNOWN
  7. ACETAMINOPHEN W/ PROPOXYPHENE HCL [Concomitant]
     Dosage: UNKNOWN
  8. IDEOS [Concomitant]
     Dosage: UNKNOWN
  9. ACTONEL [Concomitant]
     Dosage: UNKNOWN
  10. ALEPSAL [Concomitant]
     Dosage: UNKNOWN

REACTIONS (3)
  - AORTIC ANEURYSM [None]
  - ATELECTASIS [None]
  - B-CELL LYMPHOMA [None]
